FAERS Safety Report 19990731 (Version 1)
Quarter: 2021Q4

REPORT INFORMATION
  Report Type: Spontaneous
  Country: US (occurrence: US)
  Receive Date: 20211023
  Receipt Date: 20211023
  Transmission Date: 20220303
  Serious: Yes (Hospitalization)
  Sender: FDA-Public Use
  Company Number: None

PATIENT
  Age: 63 Year
  Sex: Female
  Weight: 52.6 kg

DRUGS (2)
  1. CARBOPLATIN [Suspect]
     Active Substance: CARBOPLATIN
     Dates: end: 20210921
  2. TAXOL [Suspect]
     Active Substance: PACLITAXEL
     Dates: end: 20210921

REACTIONS (4)
  - Radiation oesophagitis [None]
  - Pulmonary embolism [None]
  - Lung consolidation [None]
  - Pneumonia [None]

NARRATIVE: CASE EVENT DATE: 20211018
